FAERS Safety Report 5242393-1 (Version None)
Quarter: 2007Q1

REPORT INFORMATION
  Report Type: 
  Country: None (occurrence: None)
  Receive Date: 20070216
  Receipt Date: 20070216
  Transmission Date: 20070707
  Serious: Yes (Hospitalization)
  Sender: FDA-Public Use
  Company Number: None

PATIENT
  Age: 59 Year
  Sex: Male

DRUGS (3)
  1. WARFARIN SODIUM [Suspect]
     Indication: CARDIOMYOPATHY
     Dosage: 4 MG QD WITH 6 MG MONDAY + THURSDAY
     Dates: start: 20030901
  2. LOPID [Concomitant]
  3. ROSIGLITAZONE [Concomitant]

REACTIONS (1)
  - HAEMATURIA [None]
